FAERS Safety Report 5019168-1 (Version None)
Quarter: 2006Q2

REPORT INFORMATION
  Report Type: 
  Country: None (occurrence: None)
  Receive Date: 20060531
  Receipt Date: 20060518
  Transmission Date: 20061013
  Serious: Yes (Death)
  Sender: FDA-Public Use
  Company Number: E2020-00075-SPO-FR

PATIENT
  Age: 75 Year
  Sex: Female

DRUGS (1)
  1. ARICEPT [Suspect]
     Indication: DEMENTIA ALZHEIMER'S TYPE
     Dosage: 5 MG, 1 IN 1 D, ORAL
     Route: 048

REACTIONS (5)
  - ACCIDENTAL OVERDOSE [None]
  - FALL [None]
  - HEAD INJURY [None]
  - HYPOTENSION [None]
  - INCORRECT DOSE ADMINISTERED [None]
